FAERS Safety Report 5253121-8 (Version None)
Quarter: 2007Q1

REPORT INFORMATION
  Report Type: 
  Country: None (occurrence: None)
  Receive Date: 20070301
  Receipt Date: 20070227
  Transmission Date: 20070707
  Serious: Yes (Hospitalization)
  Sender: FDA-Public Use
  Company Number: US-GLAXOSMITHKLINE-A0641257A

PATIENT
  Age: 53 Year
  Sex: Male
  Weight: 108.2 kg

DRUGS (2)
  1. TOPOTECAN HYDROCHLORIDE [Suspect]
     Indication: SMALL CELL LUNG CANCER METASTATIC
     Dosage: 3MGM2 CYCLIC
     Route: 042
     Dates: start: 20070223
  2. BORTEZOMIB [Suspect]
     Indication: SMALL CELL LUNG CANCER METASTATIC
     Dosage: 1.6MGM2 CYCLIC
     Route: 042
     Dates: start: 20070223

REACTIONS (1)
  - MENTAL STATUS CHANGES [None]
